FAERS Safety Report 11438650 (Version 1)
Quarter: 2015Q3

REPORT INFORMATION
  Report Type: Spontaneous
  Country: US (occurrence: US)
  Receive Date: 20150901
  Receipt Date: 20150901
  Transmission Date: 20151125
  Serious: No
  Sender: FDA-Public Use
  Company Number: US-ROCHE-CID000000002221988

PATIENT
  Sex: Female

DRUGS (2)
  1. RIBAVIRIN. [Suspect]
     Active Substance: RIBAVIRIN
     Indication: PRODUCT USED FOR UNKNOWN INDICATION
     Route: 065
  2. PEGASYS [Suspect]
     Active Substance: PEGINTERFERON ALFA-2A
     Indication: HEPATITIS C
     Route: 058
     Dates: start: 20120629

REACTIONS (8)
  - Pruritus [Unknown]
  - Eczema [Unknown]
  - Fatigue [Unknown]
  - Injection site haemorrhage [Unknown]
  - Anaemia [Unknown]
  - Injection site mass [Unknown]
  - Poor quality drug administered [Unknown]
  - Irritability [Unknown]
